FAERS Safety Report 9463819 (Version 3)
Quarter: 2013Q4

REPORT INFORMATION
  Report Type: Report from Study
  Country: JP (occurrence: JP)
  Receive Date: 20130819
  Receipt Date: 20131106
  Transmission Date: 20140711
  Serious: Yes (Hospitalization)
  Sender: FDA-Public Use
  Company Number: JP-JNJFOC-20130805059

PATIENT
  Age: 73 Year
  Sex: Male
  Weight: 67 kg

DRUGS (10)
  1. STELARA [Suspect]
     Indication: PSORIASIS
     Route: 058
     Dates: start: 20130409, end: 20130409
  2. STELARA [Suspect]
     Indication: PSORIASIS
     Route: 058
     Dates: start: 20130115, end: 20130115
  3. STELARA [Suspect]
     Indication: PSORIASIS
     Route: 058
     Dates: start: 20121023, end: 20121023
  4. STELARA [Suspect]
     Indication: PSORIASIS
     Route: 058
     Dates: start: 20120925, end: 20120925
  5. ALLELOCK [Concomitant]
     Indication: PSORIASIS
     Route: 048
     Dates: start: 20120912
  6. LENDORMIN D [Concomitant]
     Indication: INSOMNIA
     Route: 048
     Dates: start: 20120912
  7. SILECE [Concomitant]
     Indication: INSOMNIA
     Route: 048
  8. HIRUDOID (HEPARINOID) [Concomitant]
     Indication: PSORIASIS
     Dosage: Q.S- AS MUCH AS IS SUFFICIENT
     Route: 061
  9. DORAL [Concomitant]
     Indication: INSOMNIA
     Route: 048
     Dates: start: 20130521
  10. PARIET [Concomitant]
     Indication: PROPHYLAXIS
     Route: 048
     Dates: start: 20130521

REACTIONS (1)
  - Colon cancer [Not Recovered/Not Resolved]
